FAERS Safety Report 6543179-8 (Version None)
Quarter: 2010Q1

REPORT INFORMATION
  Report Type: 
  Country: None (occurrence: None)
  Receive Date: 20100120
  Receipt Date: 20100115
  Transmission Date: 20100710
  Serious: Yes (Other)
  Sender: FDA-Public Use
  Company Number: CHPA2010US01279

PATIENT
  Age: 64 Year
  Sex: Male
  Weight: 89.342 kg

DRUGS (1)
  1. EX-LAX CHOCOLATE PIECES (NCH) [Suspect]
     Indication: CONSTIPATION
     Dosage: 30 MG, BID
     Route: 048
     Dates: start: 20100114, end: 20100114

REACTIONS (5)
  - DEHYDRATION [None]
  - DIARRHOEA [None]
  - FAECES DISCOLOURED [None]
  - FREQUENT BOWEL MOVEMENTS [None]
  - HUNGER [None]
